FAERS Safety Report 17250362 (Version 3)
Quarter: 2025Q4

REPORT INFORMATION
  Report Type: Spontaneous
  Country: EU (occurrence: EU)
  Receive Date: 20200109
  Receipt Date: 20251031
  Transmission Date: 20260118
  Serious: Yes (Hospitalization, Other)
  Sender: TEVA
  Company Number: None

PATIENT
  Age: 52 Year
  Sex: Female

DRUGS (16)
  1. OLANZAPINE [Suspect]
     Active Substance: OLANZAPINE
     Indication: Anxiety
     Dosage: OLANZAPINE (G)
     Route: 048
     Dates: start: 20180926
  2. LIDOCAINE HYDROCHLORIDE [Concomitant]
     Active Substance: LIDOCAINE HYDROCHLORIDE
     Indication: Pain
     Dosage: LIDOCAINE HYDROCHLORIDE (G)
     Route: 042
  3. KETAMINE [Concomitant]
     Active Substance: KETAMINE
     Indication: Pain
     Dosage: KETAMINE (G)
     Route: 042
  4. ZOLPIDEM TARTRATE [Concomitant]
     Active Substance: ZOLPIDEM TARTRATE
     Indication: Sleep disorder
     Dosage: ONE AT NIGHT
     Route: 048
  5. VALTREX [Concomitant]
     Active Substance: VALACYCLOVIR HYDROCHLORIDE
     Indication: Coxsackie viral infection
     Route: 048
  6. ATORVASTATIN [Concomitant]
     Active Substance: ATORVASTATIN
     Indication: Hypercholesterolaemia
     Dosage: AT NIGHT, ATORVASTATIN (GENERIC)
     Route: 048
  7. CALCIUM CARBONATE [Concomitant]
     Active Substance: CALCIUM CARBONATE
     Indication: Product used for unknown indication
     Route: 048
  8. FLUTICASONE FUROATE\VILANTEROL TRIFENATATE [Concomitant]
     Active Substance: FLUTICASONE FUROATE\VILANTEROL TRIFENATATE
     Indication: Product used for unknown indication
     Dosage: INHALATION USE
  9. LANSOPRAZOLE [Concomitant]
     Active Substance: LANSOPRAZOLE
     Indication: Gastrointestinal disorder
     Dosage: LANSOPRAZOLE (GENERIC)
     Route: 048
  10. VENLAFAXINE [Concomitant]
     Active Substance: VENLAFAXINE HYDROCHLORIDE
     Indication: Anxiety
     Dosage: VENLAFAXINE (GENERIC)
     Route: 048
  11. VENTOLIN [Concomitant]
     Active Substance: ALBUTEROL SULFATE
     Indication: Asthma
     Dosage: INHALATION USE
  12. VENTOLIN [Concomitant]
     Active Substance: ALBUTEROL SULFATE
     Indication: Asthma
  13. CYMBALTA [Concomitant]
     Active Substance: DULOXETINE HYDROCHLORIDE
     Indication: Anxiety
     Route: 048
  14. PENTASA [Concomitant]
     Active Substance: MESALAMINE
     Indication: Product used for unknown indication
     Dosage: PENTASA SACHET
     Route: 048
  15. SEROQUEL [Suspect]
     Active Substance: QUETIAPINE FUMARATE
     Indication: Anxiety
     Dosage: INCREASED TO HALF TABLET FOUR TIMES DAILY
     Route: 048
     Dates: start: 20180829, end: 20180926
  16. SEROQUEL [Suspect]
     Active Substance: QUETIAPINE FUMARATE
     Indication: Anxiety
     Dosage: HALF TABLET 12.5MG TWICE A DAY FROM 2018/07/25
     Route: 048
     Dates: start: 20180725, end: 20180829

REACTIONS (61)
  - Tongue movement disturbance [Not Recovered/Not Resolved]
  - Tooth disorder [Not Recovered/Not Resolved]
  - Tongue spasm [Not Recovered/Not Resolved]
  - Dystonia [Not Recovered/Not Resolved]
  - Impaired quality of life [Not Recovered/Not Resolved]
  - Tongue haemorrhage [Not Recovered/Not Resolved]
  - Salivary hypersecretion [Not Recovered/Not Resolved]
  - Off label use [Not Recovered/Not Resolved]
  - Vomiting [Not Recovered/Not Resolved]
  - Vomiting projectile [Not Recovered/Not Resolved]
  - Hypophagia [Not Recovered/Not Resolved]
  - Feeding tube user [Not Recovered/Not Resolved]
  - Facial paralysis [Not Recovered/Not Resolved]
  - Gingival recession [Not Recovered/Not Resolved]
  - Pupillary reflex impaired [Not Recovered/Not Resolved]
  - Musculoskeletal stiffness [Unknown]
  - Dysphonia [Unknown]
  - Blepharospasm [Not Recovered/Not Resolved]
  - Regurgitation [Not Recovered/Not Resolved]
  - Hyperhidrosis [Not Recovered/Not Resolved]
  - Headache [Not Recovered/Not Resolved]
  - Hyperventilation [Not Recovered/Not Resolved]
  - Aphasia [Not Recovered/Not Resolved]
  - Eye infection [Not Recovered/Not Resolved]
  - Dysphagia [Not Recovered/Not Resolved]
  - Abnormal behaviour [Unknown]
  - Eyelid ptosis [Not Recovered/Not Resolved]
  - Deformity [Not Recovered/Not Resolved]
  - Weight decreased [Not Recovered/Not Resolved]
  - Cough [Not Recovered/Not Resolved]
  - Product physical issue [Not Recovered/Not Resolved]
  - Diplopia [Not Recovered/Not Resolved]
  - Lip disorder [Not Recovered/Not Resolved]
  - Deafness neurosensory [Not Recovered/Not Resolved]
  - Hypoacusis [Not Recovered/Not Resolved]
  - Visual impairment [Not Recovered/Not Resolved]
  - Decreased appetite [Not Recovered/Not Resolved]
  - Intestinal obstruction [Not Recovered/Not Resolved]
  - Laryngeal dyskinesia [Not Recovered/Not Resolved]
  - Dyskinesia [Not Recovered/Not Resolved]
  - Abnormal behaviour [Unknown]
  - Amnesia [Unknown]
  - Cerebral small vessel ischaemic disease [Unknown]
  - Muscle rigidity [Unknown]
  - Intentional self-injury [Unknown]
  - Constipation [Not Recovered/Not Resolved]
  - Drooling [Not Recovered/Not Resolved]
  - Tongue injury [Not Recovered/Not Resolved]
  - Aphonia [Not Recovered/Not Resolved]
  - Diarrhoea [Not Recovered/Not Resolved]
  - Macular hole [Not Recovered/Not Resolved]
  - Mouth injury [Not Recovered/Not Resolved]
  - Tinnitus [Unknown]
  - Regurgitation [Not Recovered/Not Resolved]
  - Fall [Not Recovered/Not Resolved]
  - Retinal detachment [Not Recovered/Not Resolved]
  - Palatal disorder [Not Recovered/Not Resolved]
  - Muscle spasms [Not Recovered/Not Resolved]
  - Facial spasm [Unknown]
  - Oculogyric crisis [Unknown]
  - Myalgia [Not Recovered/Not Resolved]

NARRATIVE: CASE EVENT DATE: 20180701
